FAERS Safety Report 7611940-4 (Version None)
Quarter: 2011Q3

REPORT INFORMATION
  Report Type: 
  Country: None (occurrence: None)
  Receive Date: 20110715
  Receipt Date: 20110704
  Transmission Date: 20111222
  Serious: Yes (Other)
  Sender: FDA-Public Use
  Company Number: FR-UCBSA-035533

PATIENT
  Sex: Male
  Weight: 80 kg

DRUGS (2)
  1. MIZOLLEN [Suspect]
     Indication: CONJUNCTIVITIS ALLERGIC
     Dosage: ONE DOSAGE FORM ONCE DAILY
     Route: 048
     Dates: start: 20090101, end: 20100101
  2. XYZAL [Suspect]
     Indication: CONJUNCTIVITIS ALLERGIC
     Dosage: 1 DOSAGE FORM ONCE DAILY
     Route: 048
     Dates: start: 20090101, end: 20110101

REACTIONS (4)
  - MUSCULOSKELETAL CHEST PAIN [None]
  - ALANINE AMINOTRANSFERASE INCREASED [None]
  - BLOOD CREATINE PHOSPHOKINASE INCREASED [None]
  - ASPARTATE AMINOTRANSFERASE INCREASED [None]
